FAERS Safety Report 25161074 (Version 1)
Quarter: 2025Q2

REPORT INFORMATION
  Report Type: Report from Study
  Country: BR (occurrence: BR)
  Receive Date: 20250404
  Receipt Date: 20250404
  Transmission Date: 20250716
  Serious: Yes (Other)
  Sender: BIOGEN
  Company Number: BR-BIOGEN-2025BI01306444

PATIENT
  Sex: Female
  Weight: 56 kg

DRUGS (3)
  1. TYSABRI [Suspect]
     Active Substance: NATALIZUMAB
     Indication: Multiple sclerosis
     Dosage: 300MG/15ML
     Route: 050
     Dates: start: 202412
  2. GABAPENTIN [Concomitant]
     Active Substance: GABAPENTIN
     Indication: Tremor
     Route: 050
     Dates: start: 202503
  3. AMITRIPTYLINE [Concomitant]
     Active Substance: AMITRIPTYLINE
     Indication: Sleep disorder
     Route: 050
     Dates: start: 2021

REACTIONS (3)
  - Noninfective encephalitis [Unknown]
  - Depression [Unknown]
  - Off label use [Unknown]
